FAERS Safety Report 9252447 (Version 1)
Quarter: 2013Q1

REPORT INFORMATION
  Report Type: Spontaneous
  Country: US (occurrence: None)
  Receive Date: 20130305
  Receipt Date: 20130305
  Transmission Date: 20140127
  Serious: Yes (Other)
  Sender: FDA-Public Use
  Company Number: 163-21880-12091455 (0)

PATIENT
  Age: 57 Year
  Sex: Male
  Weight: 81.65 kg

DRUGS (7)
  1. REVLIMID [Suspect]
     Indication: PLASMA CELL MYELOMA
     Dosage: 28 IN 28 D
     Route: 048
     Dates: start: 20120817, end: 20120820
  2. ACYCLOVIR (ACICLOVIR) (ACICLOVIR) [Concomitant]
  3. ASPIRIN (ACETYLSALICYLIC ACID) [Concomitant]
  4. CALCIUM +D (OS-CAL) [Concomitant]
  5. VITAMINS [Concomitant]
  6. PREDNISONE (PREDNISONE) [Concomitant]
  7. ZOMETA (ZOLEDRONIC ACID) [Concomitant]

REACTIONS (2)
  - Swelling face [None]
  - Pruritus [None]
